FAERS Safety Report 8757236 (Version 1)
Quarter: 2012Q4

REPORT INFORMATION
  Report Type: 
  Country: US (occurrence: US)
  Receive Date: 20120828
  Receipt Date: 20120828
  Transmission Date: 20130627
  Serious: Yes (Other)
  Sender: FDA-Public Use
  Company Number: US-TEVA-355448USA

PATIENT
  Sex: Female

DRUGS (1)
  1. TRAMADOL [Suspect]

REACTIONS (3)
  - Unresponsive to stimuli [Recovering/Resolving]
  - Hallucination [Not Recovered/Not Resolved]
  - Decreased appetite [Recovering/Resolving]
